FAERS Safety Report 4693414-6 (Version None)
Quarter: 2005Q2

REPORT INFORMATION
  Report Type: 
  Country: None (occurrence: None)
  Receive Date: 20050617
  Receipt Date: 20050421
  Transmission Date: 20051028
  Serious: Yes (Hospitalization)
  Sender: FDA-Public Use
  Company Number: US-BRISTOL-MYERS SQUIBB COMPANY-12942298

PATIENT
  Age: 51 Year
  Sex: Female

DRUGS (11)
  1. CETUXIMAB [Suspect]
     Indication: COLORECTAL CANCER
     Route: 042
     Dates: start: 20050411, end: 20050411
  2. OXALIPLATIN [Suspect]
     Indication: COLORECTAL CANCER
     Route: 042
     Dates: start: 20050411, end: 20050411
  3. FLUOROURACIL [Suspect]
     Indication: COLORECTAL CANCER
     Route: 042
     Dates: start: 20050411, end: 20050411
  4. LEUCOVORIN CALCIUM [Suspect]
     Indication: COLORECTAL CANCER
     Route: 042
     Dates: start: 20050411, end: 20050411
  5. SYNTHROID [Concomitant]
  6. ACTONEL [Concomitant]
  7. ALLEGRA [Concomitant]
  8. BEXTRA [Concomitant]
  9. OS-CAL [Concomitant]
  10. NYSTATIN [Concomitant]
  11. CRESTOR [Concomitant]

REACTIONS (13)
  - ABDOMINAL DISCOMFORT [None]
  - CHEST PAIN [None]
  - COUGH [None]
  - DIARRHOEA [None]
  - GASTROENTERITIS [None]
  - LEUKOPENIA [None]
  - LYMPHADENOPATHY [None]
  - MUSCLE SPASMS [None]
  - NAUSEA [None]
  - PLEURITIC PAIN [None]
  - RENAL CYST [None]
  - VOMITING [None]
  - WHITE BLOOD CELL COUNT INCREASED [None]
